FAERS Safety Report 7889385-1 (Version None)
Quarter: 2011Q4

REPORT INFORMATION
  Report Type: 
  Country: None (occurrence: None)
  Receive Date: 20111103
  Receipt Date: 20111026
  Transmission Date: 20120403
  Serious: Yes (Hospitalization)
  Sender: FDA-Public Use
  Company Number: US-JNJFOC-20111012221

PATIENT
  Sex: Female
  Weight: 36.6 kg

DRUGS (11)
  1. PREVACID [Concomitant]
  2. HUMIRA [Suspect]
     Indication: PRODUCT USED FOR UNKNOWN INDICATION
     Dates: start: 20090218
  3. PEPTAMEN [Concomitant]
  4. A MULTIVITAMIN [Concomitant]
  5. CHOLECALCIFEROL [Concomitant]
  6. FOLIC ACID [Concomitant]
  7. METHOTREXATE [Suspect]
     Indication: PRODUCT USED FOR UNKNOWN INDICATION
  8. PREDNISONE [Concomitant]
  9. ANTIBIOTICS [Concomitant]
     Indication: INFLAMMATORY BOWEL DISEASE
  10. FISH OIL [Concomitant]
  11. INFLIXIMAB, RECOMBINANT [Suspect]
     Indication: INFLAMMATORY BOWEL DISEASE
     Route: 042
     Dates: start: 20080205, end: 20090114

REACTIONS (1)
  - INTESTINAL STENOSIS [None]
